FAERS Safety Report 6047035-3 (Version None)
Quarter: 2009Q1

REPORT INFORMATION
  Report Type: 
  Country: None (occurrence: None)
  Receive Date: 20090122
  Receipt Date: 20090112
  Transmission Date: 20090719
  Serious: Yes (Hospitalization)
  Sender: FDA-Public Use
  Company Number: US-ELI_LILLY_AND_COMPANY-US200901001785

PATIENT
  Sex: Female
  Weight: 99.773 kg

DRUGS (24)
  1. EXENATIDE [Suspect]
     Indication: TYPE 2 DIABETES MELLITUS
     Dosage: 10 UG, 2/D
     Route: 058
     Dates: start: 20080811
  2. PREDNISONE [Concomitant]
     Indication: CHRONIC OBSTRUCTIVE PULMONARY DISEASE
     Dates: start: 20020101
  3. ASTELIN [Concomitant]
     Indication: HYPERSENSITIVITY
     Dates: start: 20070101
  4. NEXIUM [Concomitant]
     Indication: PROPHYLAXIS AGAINST GASTROINTESTINAL ULCER
     Dates: start: 20030101
  5. CLARINEX [Concomitant]
     Indication: HYPERSENSITIVITY
     Dates: start: 19880101
  6. POTASSIUM CHLORIDE [Concomitant]
     Indication: SUPPLEMENTATION THERAPY
     Dosage: UNK, UNK
     Dates: start: 20060101
  7. LASIX [Concomitant]
     Indication: OEDEMA
     Dates: start: 20060101
  8. ALTACE [Concomitant]
     Indication: HYPERTENSION
     Dates: start: 20040101
  9. ALDACTONE [Concomitant]
     Indication: OEDEMA
     Dates: start: 20050101
  10. LEXAPRO [Concomitant]
     Indication: ANXIETY
     Dates: start: 20060101
  11. PLAVIX [Concomitant]
     Dates: start: 20080101
  12. MULTIVITAMINS PLUS IRON [Concomitant]
     Indication: ANAEMIA
     Dates: start: 20070101
  13. NASONEX [Concomitant]
     Indication: HYPERSENSITIVITY
     Dates: start: 20000101
  14. SPIRIVA [Concomitant]
     Indication: CHRONIC OBSTRUCTIVE PULMONARY DISEASE
     Dates: start: 20000101
  15. CARDIZEM LA [Concomitant]
     Indication: HYPERTENSION
     Dates: start: 20000101
  16. ZETIA [Concomitant]
     Indication: HYPERCHOLESTEROLAEMIA
     Dates: start: 20050101
  17. LIPITOR [Concomitant]
     Indication: HYPERCHOLESTEROLAEMIA
     Dates: start: 20050101
  18. SINGULAIR [Concomitant]
     Indication: ASTHMA
     Dates: start: 20050101
  19. ADVAIR DISKUS 100/50 [Concomitant]
     Indication: ASTHMA
     Dates: start: 20020101
  20. ACTONEL [Concomitant]
     Indication: OSTEOPENIA
     Dates: start: 20080101
  21. LORAZEPAM [Concomitant]
     Indication: ANXIETY
     Dates: start: 19980101
  22. LEVEMIR [Concomitant]
     Indication: TYPE 2 DIABETES MELLITUS
     Dosage: UNK, UNK
     Dates: start: 20080604
  23. NOVAPEN [Concomitant]
     Indication: TYPE 2 DIABETES MELLITUS
     Dates: start: 20080604
  24. NOVOLIN R [Concomitant]
     Indication: TYPE 2 DIABETES MELLITUS
     Dates: start: 20080916

REACTIONS (1)
  - PNEUMONIA [None]
